FAERS Safety Report 7348799-9 (Version None)
Quarter: 2011Q1

REPORT INFORMATION
  Report Type: 
  Country: None (occurrence: None)
  Receive Date: 20110314
  Receipt Date: 20100924
  Transmission Date: 20110831
  Serious: Yes (Hospitalization)
  Sender: FDA-Public Use
  Company Number: US-BAYER-201026664NA

PATIENT
  Sex: Female
  Weight: 67.12 kg

DRUGS (9)
  1. DARVOCET [Concomitant]
     Indication: MENSTRUAL DISORDER
     Dosage: UNK
  2. ZANTAC [Concomitant]
     Indication: GASTROOESOPHAGEAL REFLUX DISEASE
     Dosage: UNK
     Dates: start: 20091101
  3. YAZ [Suspect]
     Indication: ACNE
     Route: 048
     Dates: start: 20090701, end: 20090930
  4. LISINOPRIL [Concomitant]
     Indication: HYPERTENSION
     Dosage: UNK
     Dates: start: 20100301, end: 20100501
  5. IBUPROFEN [Concomitant]
  6. LISINOPRIL [Concomitant]
     Indication: MIGRAINE
  7. PROMETHAZINE [Concomitant]
  8. TETRACYCLINE [Concomitant]
     Dosage: UNK
     Dates: start: 20090101, end: 20090301
  9. ZOLOFT [Concomitant]
     Indication: POST-TRAUMATIC STRESS DISORDER
     Dosage: UNK
     Dates: start: 20100201, end: 20100501

REACTIONS (3)
  - GALLBLADDER DISORDER [None]
  - ABDOMINAL PAIN UPPER [None]
  - CHOLECYSTITIS CHRONIC [None]
